FAERS Safety Report 7499819-2 (Version None)
Quarter: 2011Q2

REPORT INFORMATION
  Report Type: 
  Country: None (occurrence: None)
  Receive Date: 20110524
  Receipt Date: 20110516
  Transmission Date: 20111010
  Serious: Yes (Death, Hospitalization)
  Sender: FDA-Public Use
  Company Number: US-BAYER-201026802NA

PATIENT
  Age: 59 Year
  Sex: Male
  Weight: 115 kg

DRUGS (21)
  1. OXYCONTIN [Concomitant]
     Indication: PAIN
     Route: 048
     Dates: start: 20100610
  2. NORVASC [Concomitant]
     Indication: HYPERTENSION
     Route: 048
     Dates: start: 20100319
  3. LIDOCAINE [Concomitant]
     Indication: INCISION SITE COMPLICATION
  4. HYDRALAZINE HCL [Concomitant]
     Route: 040
     Dates: start: 20100626
  5. HYDRALAZINE HCL [Concomitant]
     Route: 040
     Dates: start: 20100716, end: 20100720
  6. LIDOCAINE [Concomitant]
     Indication: INCISION SITE PAIN
     Dosage: 1 PATCH DAILY
     Route: 062
     Dates: start: 20100217
  7. RAPAMUNE [Concomitant]
     Indication: PROPHYLAXIS AGAINST TRANSPLANT REJECTION
     Route: 048
     Dates: start: 20090212
  8. ACETAMINOPHEN [Concomitant]
     Route: 048
     Dates: start: 20100626
  9. PERCOCET [Concomitant]
     Indication: PAIN
     Dosage: AS USED DOSE: 5-325 MG
     Route: 048
     Dates: start: 20100610
  10. OMEPRAZOLE [Concomitant]
     Indication: GASTROOESOPHAGEAL REFLUX DISEASE
     Route: 048
     Dates: start: 20100602
  11. ACYCLOVIR [Concomitant]
     Indication: ANTIVIRAL PROPHYLAXIS
     Dosage: DAILY DOSE 400 MG
     Route: 048
     Dates: start: 20100122
  12. RAPAMUNE [Concomitant]
     Route: 048
     Dates: start: 20100716, end: 20100720
  13. NEXAVAR [Suspect]
     Indication: HEPATIC NEOPLASM MALIGNANT
     Dosage: 200 MG, BID
     Route: 048
     Dates: start: 20091021, end: 20100601
  14. PERCOCET [Concomitant]
     Dosage: EVERY 4 HR - AS USED DOSE: 5-325 MG
     Route: 048
     Dates: start: 20100716, end: 20100720
  15. RAPAMUNE [Concomitant]
     Dosage: 3 MG, QD
     Route: 048
     Dates: start: 20091202
  16. SULFAMETHOXAZOLE AND TRIMETHOPRIM [Concomitant]
     Indication: ANTIVIRAL PROPHYLAXIS
     Dosage: M-W-F - AS USED DOSE: 160-800 MG
     Route: 048
     Dates: start: 20090807
  17. NORVASC [Concomitant]
     Route: 048
  18. POLYETHYLENE GLYCOL [Concomitant]
     Indication: CONSTIPATION
     Route: 048
     Dates: start: 20090821
  19. MAGNESIUM OXIDE [Concomitant]
     Indication: VITAMIN SUPPLEMENTATION
     Dosage: 1-2 TABLETS DAILY
     Route: 048
     Dates: start: 20090807
  20. ASPIRIN [Concomitant]
     Indication: INCISION SITE COMPLICATION
     Route: 048
     Dates: start: 20100717
  21. MORPHINE [Concomitant]
     Route: 040
     Dates: start: 20100626

REACTIONS (3)
  - CONVULSION [None]
  - DEATH [None]
  - CEREBRAL ISCHAEMIA [None]
